FAERS Safety Report 5044859-6 (Version None)
Quarter: 2006Q2

REPORT INFORMATION
  Report Type: 
  Country: None (occurrence: None)
  Receive Date: 20060601
  Receipt Date: 20060315
  Transmission Date: 20061013
  Serious: No
  Sender: FDA-Public Use
  Company Number: 2006-BP-01447BP

PATIENT
  Sex: Male

DRUGS (4)
  1. SPIRIVA [Suspect]
     Indication: BRONCHITIS CHRONIC
     Dosage: 18 MCG (18 MCG,1 IN 1 D),IH
     Dates: start: 20040601
  2. SPIRIVA [Suspect]
     Indication: CHRONIC OBSTRUCTIVE PULMONARY DISEASE
     Dosage: 18 MCG (18 MCG,1 IN 1 D),IH
     Dates: start: 20040601
  3. PULMICORT [Concomitant]
  4. COMBIVENT (COMBIVENT /01261001/) [Concomitant]

REACTIONS (2)
  - DRUG INEFFECTIVE [None]
  - DYSPNOEA EXACERBATED [None]
